FAERS Safety Report 24637838 (Version 1)
Quarter: 2024Q4

REPORT INFORMATION
  Report Type: Spontaneous
  Country: CN (occurrence: CN)
  Receive Date: 20241119
  Receipt Date: 20241119
  Transmission Date: 20250115
  Serious: Yes (Hospitalization)
  Sender: SANDOZ
  Company Number: CN-002147023-NVSC2024CN220386

PATIENT
  Age: 7 Year
  Sex: Male
  Weight: 25.6 kg

DRUGS (1)
  1. TOBREX [Suspect]
     Active Substance: TOBRAMYCIN
     Indication: Injury of conjunctiva
     Dosage: 0.05 ML, QID (LOCAL ADMINISTARTION)
     Route: 050
     Dates: start: 20241026, end: 20241031

REACTIONS (5)
  - Face oedema [Recovering/Resolving]
  - Erythema [Recovering/Resolving]
  - Drug hypersensitivity [Recovering/Resolving]
  - Rash maculo-papular [Recovering/Resolving]
  - Pruritus [Recovering/Resolving]

NARRATIVE: CASE EVENT DATE: 20241028
